FAERS Safety Report 8285888-9 (Version None)
Quarter: 2012Q2

REPORT INFORMATION
  Report Type: 
  Country: None (occurrence: None)
  Receive Date: 20120414
  Receipt Date: 20110227
  Transmission Date: 20120825
  Serious: Yes (Other)
  Sender: FDA-Public Use
  Company Number: PHHY2011US16865

PATIENT
  Sex: Male

DRUGS (1)
  1. GLEEVEC [Suspect]

REACTIONS (3)
  - PREMATURE BABY [None]
  - EXPOSURE VIA FATHER [None]
  - NEONATAL RESPIRATORY DISTRESS SYNDROME [None]
